FAERS Safety Report 5917112-3 (Version None)
Quarter: 2008Q4

REPORT INFORMATION
  Report Type: 
  Country: None (occurrence: None)
  Receive Date: 20081014
  Receipt Date: 20081007
  Transmission Date: 20090506
  Serious: No
  Sender: FDA-Public Use
  Company Number: JP-ELI_LILLY_AND_COMPANY-JP200808006035

PATIENT
  Sex: Female
  Weight: 56.5 kg

DRUGS (7)
  1. ALIMTA [Suspect]
     Indication: PLEURAL MESOTHELIOMA MALIGNANT
     Dosage: 740 MG, OTHER
     Route: 042
     Dates: start: 20080822, end: 20080822
  2. ALIMTA [Suspect]
     Dosage: UNK, UNK
     Route: 042
  3. KYTRIL - FOR INFUSION [Concomitant]
     Indication: PROPHYLAXIS OF NAUSEA AND VOMITING
     Dosage: 3 MG, UNK
     Route: 042
     Dates: start: 20080822, end: 20080822
  4. LASIX [Concomitant]
     Indication: CARDIAC FAILURE
     Dosage: 20 MG, DAILY (1/D)
     Route: 048
     Dates: start: 20080820
  5. SODIUM CHLORIDE INJ [Concomitant]
     Indication: INAPPROPRIATE ANTIDIURETIC HORMONE SECRETION
     Dosage: 9 G, DAILY (1/D)
     Route: 048
     Dates: start: 20080820
  6. PANVITAN [Concomitant]
     Dosage: 1 G, DAILY (1/D)
     Route: 048
     Dates: start: 20080815
  7. LENDORMIN [Concomitant]
     Indication: INSOMNIA
     Dosage: 0.25 MG, DAILY (1/D)
     Route: 048
     Dates: start: 20080821

REACTIONS (1)
  - ANAPHYLACTOID REACTION [None]
